FAERS Safety Report 4277050-1 (Version None)
Quarter: 2004Q1

REPORT INFORMATION
  Report Type: 
  Country: None (occurrence: None)
  Receive Date: 20040120
  Receipt Date: 20040109
  Transmission Date: 20041129
  Serious: No
  Sender: FDA-Public Use
  Company Number: 2004-111457-NL

PATIENT
  Age: 60 Year
  Sex: Female

DRUGS (3)
  1. MIRTAZAPINE [Suspect]
     Indication: DEPRESSION
     Dosage: 30 MG ORAL
     Route: 048
     Dates: start: 20031106, end: 20031201
  2. OLANZAPINE [Suspect]
     Indication: PSYCHOTIC DISORDER
     Dosage: 15 MG/10 MG
     Route: 048
     Dates: start: 20031001
  3. OLANZAPINE [Suspect]
     Indication: PSYCHOTIC DISORDER
     Dosage: 15 MG/10 MG
     Route: 048
     Dates: start: 20040105

REACTIONS (2)
  - ALANINE AMINOTRANSFERASE INCREASED [None]
  - BLOOD BILIRUBIN INCREASED [None]
